FAERS Safety Report 8200334-9 (Version None)
Quarter: 2012Q1

REPORT INFORMATION
  Report Type: 
  Country: None (occurrence: None)
  Receive Date: 20120312
  Receipt Date: 20120307
  Transmission Date: 20120608
  Serious: Yes (Hospitalization)
  Sender: FDA-Public Use
  Company Number: JP-PFIZER INC-2010126371

PATIENT
  Age: 64 Year
  Sex: Male

DRUGS (13)
  1. SUNITINIB MALATE [Suspect]
     Dosage: 50 MG, 1X/DAY
     Route: 048
     Dates: start: 20090430, end: 20090527
  2. CEFOPERAZONE SODIUM/SULBACTAM SODIUM [Concomitant]
     Indication: RENAL CELL CARCINOMA
     Dosage: 1 G, 2X/DAY
     Route: 042
     Dates: start: 20100704, end: 20100714
  3. TAMSULOSIN HCL [Concomitant]
     Dosage: UNK
     Route: 048
  4. ALPRAZOLAM [Concomitant]
     Dosage: UNK
     Route: 048
  5. SUNITINIB MALATE [Suspect]
     Dosage: 50 MG, 1X/DAY
     Route: 048
     Dates: start: 20090319, end: 20090415
  6. NAFAMOSTAT MESILATE [Concomitant]
     Indication: RENAL CELL CARCINOMA
     Dosage: 20 MG, 2X/DAY
     Dates: start: 20100703, end: 20100704
  7. SUNITINIB MALATE [Suspect]
     Indication: RENAL CELL CARCINOMA
     Dosage: 50 MG, 1X/DAY
     Route: 048
     Dates: start: 20090205, end: 20090304
  8. SEROQUEL [Concomitant]
     Dosage: UNK
     Route: 048
  9. PHENOBARBITAL TAB [Concomitant]
     Dosage: UNK
     Route: 048
  10. SILECE [Concomitant]
     Dosage: UNK
     Route: 048
  11. URSO 250 [Concomitant]
     Dosage: UNK
     Route: 048
  12. SUNITINIB MALATE [Suspect]
     Dosage: 37.5 MG, 1X/DAY
     Route: 048
     Dates: start: 20100728, end: 20100818
  13. FIRSTCIN [Concomitant]
     Indication: RENAL CELL CARCINOMA
     Dosage: 1 G, 2X/DAY
     Route: 042
     Dates: start: 20100702, end: 20100703

REACTIONS (1)
  - PYODERMA GANGRENOSUM [None]
